FAERS Safety Report 4306754-7 (Version None)
Quarter: 2004Q1

REPORT INFORMATION
  Report Type: 
  Country: None (occurrence: None)
  Receive Date: 20040227
  Receipt Date: 20031209
  Transmission Date: 20041129
  Serious: Yes (Death, Hospitalization)
  Sender: FDA-Public Use
  Company Number: DE-BRISTOL-MYERS SQUIBB COMPANY-12453791

PATIENT
  Age: 55 Year
  Sex: Female

DRUGS (2)
  1. ETOPOSIDE [Suspect]
     Indication: SMALL CELL LUNG CANCER STAGE UNSPECIFIED
     Route: 042
     Dates: start: 20030630, end: 20031021
  2. CISPLATIN [Suspect]
     Indication: SMALL CELL LUNG CANCER STAGE UNSPECIFIED
     Route: 042
     Dates: start: 20030630, end: 20031020

REACTIONS (4)
  - DISORIENTATION [None]
  - HEMIPARESIS [None]
  - SENSORY DISTURBANCE [None]
  - SMALL CELL LUNG CANCER STAGE UNSPECIFIED [None]
